FAERS Safety Report 5445627-3 (Version None)
Quarter: 2007Q3

REPORT INFORMATION
  Report Type: 
  Country: None (occurrence: None)
  Receive Date: 20070906
  Receipt Date: 20070830
  Transmission Date: 20080115
  Serious: Yes (Hospitalization)
  Sender: FDA-Public Use
  Company Number: ES-MERCK-0708ESP00021

PATIENT
  Age: 7 Month
  Sex: Male

DRUGS (1)
  1. SINGULAIR [Suspect]
     Indication: BRONCHITIS
     Route: 048
     Dates: start: 20070704, end: 20070712

REACTIONS (1)
  - THROMBOCYTOPENIA [None]
